FAERS Safety Report 18844975 (Version 1)
Quarter: 2021Q1

REPORT INFORMATION
  Report Type: Report from Study
  Country: US (occurrence: US)
  Receive Date: 20210203
  Receipt Date: 20210203
  Transmission Date: 20210419
  Serious: No
  Sender: FDA-Public Use
  Company Number: US-EXELIXIS-CABO-20030606

PATIENT
  Age: 72 Year
  Sex: Male

DRUGS (2)
  1. CABOMETYX [Suspect]
     Active Substance: CABOZANTINIB S-MALATE
     Indication: BONE CANCER
  2. CABOMETYX [Suspect]
     Active Substance: CABOZANTINIB S-MALATE
     Indication: RENAL CANCER
     Dosage: 60 MG, QD
     Dates: start: 20200521

REACTIONS (13)
  - Blood pressure increased [Recovered/Resolved]
  - Dyspepsia [Recovered/Resolved]
  - Diarrhoea [Recovered/Resolved]
  - Rash pruritic [Not Recovered/Not Resolved]
  - Blood creatinine decreased [Not Recovered/Not Resolved]
  - Dry mouth [Recovered/Resolved]
  - Taste disorder [Not Recovered/Not Resolved]
  - Dysphonia [Not Recovered/Not Resolved]
  - Blood lactate dehydrogenase increased [Not Recovered/Not Resolved]
  - Temperature intolerance [Not Recovered/Not Resolved]
  - Nausea [Recovered/Resolved]
  - Fatigue [Not Recovered/Not Resolved]
  - Decreased appetite [Not Recovered/Not Resolved]

NARRATIVE: CASE EVENT DATE: 202007
